FAERS Safety Report 15609185 (Version 5)
Quarter: 2021Q1

REPORT INFORMATION
  Report Type: Spontaneous
  Country: US (occurrence: US)
  Receive Date: 20181112
  Receipt Date: 20210302
  Transmission Date: 20210419
  Serious: Yes (Other)
  Sender: FDA-Public Use
  Company Number: US-PFIZER INC-2018181285

PATIENT
  Age: 66 Year
  Sex: Male
  Weight: 90.7 kg

DRUGS (1)
  1. XELJANZ XR [Suspect]
     Active Substance: TOFACITINIB CITRATE
     Indication: RHEUMATOID ARTHRITIS
     Dosage: 11 MG, 1X/DAY
     Route: 048
     Dates: start: 20180611

REACTIONS (9)
  - Skin cancer [Unknown]
  - Bone cyst [Unknown]
  - Pain [Unknown]
  - Joint range of motion decreased [Not Recovered/Not Resolved]
  - Spinal cord disorder [Unknown]
  - Discomfort [Unknown]
  - Malignant melanoma [Unknown]
  - Red blood cell sedimentation rate increased [Unknown]
  - Hand deformity [Not Recovered/Not Resolved]

NARRATIVE: CASE EVENT DATE: 201807
